FAERS Safety Report 8605326 (Version 4)
Quarter: 2018Q4

REPORT INFORMATION
  Report Type: Spontaneous
  Country: FR (occurrence: FR)
  Receive Date: 20120608
  Receipt Date: 20181119
  Transmission Date: 20190205
  Serious: Yes (Hospitalization)
  Sender: FDA-Public Use
  Company Number: FR-ROCHE-1075158

PATIENT
  Age: 79 Year
  Sex: Male

DRUGS (11)
  1. CORTANCYL [Suspect]
     Active Substance: PREDNISONE
     Indication: AUTOIMMUNE HAEMOLYTIC ANAEMIA
     Route: 048
     Dates: start: 20120418
  2. KARDEGIC [Concomitant]
     Active Substance: ASPIRIN DL-LYSINE
  3. PLAVIX [Concomitant]
     Active Substance: CLOPIDOGREL BISULFATE
  4. CORTANCYL [Suspect]
     Active Substance: PREDNISONE
     Route: 048
     Dates: start: 201205
  5. ROSUVASTATIN. [Concomitant]
     Active Substance: ROSUVASTATIN
     Dosage: UNK
     Route: 065
  6. HYDREA [Concomitant]
     Active Substance: HYDROXYUREA
  7. MABTHERA [Suspect]
     Active Substance: RITUXIMAB
     Indication: AUTOIMMUNE HAEMOLYTIC ANAEMIA
     Route: 042
     Dates: start: 20120419, end: 20120426
  8. CRESTOR [Concomitant]
     Active Substance: ROSUVASTATIN CALCIUM
  9. CACIT D3 [Concomitant]
     Active Substance: CALCIUM\CHOLECALCIFEROL
  10. CORTANCYL [Suspect]
     Active Substance: PREDNISONE
     Route: 048
     Dates: start: 20120420
  11. CORTANCYL [Suspect]
     Active Substance: PREDNISONE
     Route: 048
     Dates: start: 20120504

REACTIONS (3)
  - Confusional state [Recovered/Resolved]
  - Disorientation [Recovered/Resolved]
  - Agitation [Recovered/Resolved]

NARRATIVE: CASE EVENT DATE: 20120501
